FAERS Safety Report 17911518 (Version 2)
Quarter: 2020Q3

REPORT INFORMATION
  Report Type: Spontaneous
  Country: CA (occurrence: CA)
  Receive Date: 20200618
  Receipt Date: 20200721
  Transmission Date: 20201103
  Serious: Yes (Hospitalization, Other)
  Sender: FDA-Public Use
  Company Number: CA-REGENERON PHARMACEUTICALS, INC.-2020-44233

PATIENT

DRUGS (1)
  1. EYLEA [Suspect]
     Active Substance: AFLIBERCEPT
     Indication: NEOVASCULAR AGE-RELATED MACULAR DEGENERATION
     Dosage: TREAT?AND?EXTEND REGIMEN WITH 7 INJECTIONS IN EACH EYE OVER ONE YEAR
     Route: 031

REACTIONS (3)
  - Subretinal fluid [Recovering/Resolving]
  - Blindness unilateral [Recovering/Resolving]
  - Macular hole [Recovered/Resolved]
